FAERS Safety Report 14605541 (Version 3)
Quarter: 2022Q2

REPORT INFORMATION
  Report Type: Spontaneous
  Country: US (occurrence: US)
  Receive Date: 20180306
  Receipt Date: 20220609
  Transmission Date: 20220720
  Serious: No
  Sender: FDA-Public Use
  Company Number: US-INTERCEPT-PMOCA2018000003

PATIENT
  Sex: Female

DRUGS (2)
  1. OCALIVA [Suspect]
     Active Substance: OBETICHOLIC ACID
     Indication: Primary biliary cholangitis
     Dosage: 5 MG, QD
     Route: 048
     Dates: start: 20171228
  2. OCALIVA [Suspect]
     Active Substance: OBETICHOLIC ACID
     Dosage: 10 MG, QD
     Route: 048

REACTIONS (10)
  - Musculoskeletal discomfort [Unknown]
  - Insomnia [Unknown]
  - Feeling abnormal [Unknown]
  - Back pain [Unknown]
  - Arthralgia [Unknown]
  - Pruritus [Unknown]
  - Dizziness [Unknown]
  - Abdominal pain upper [Unknown]
  - Abdominal pain [Unknown]
  - Product dose omission issue [Unknown]
